FAERS Safety Report 19135885 (Version 2)
Quarter: 2022Q1

REPORT INFORMATION
  Report Type: Spontaneous
  Country: US (occurrence: None)
  Receive Date: 20210414
  Receipt Date: 20220326
  Transmission Date: 20220423
  Serious: No
  Sender: FDA-Public Use
  Company Number: 2021A267243

PATIENT
  Age: 812 Month
  Sex: Female
  Weight: 104.3 kg

DRUGS (6)
  1. FASENRA [Suspect]
     Active Substance: BENRALIZUMAB
     Indication: Asthma
     Route: 058
     Dates: start: 202102
  2. LISINOPRIL [Suspect]
     Active Substance: LISINOPRIL
     Indication: Blood pressure measurement
     Route: 048
     Dates: start: 2020, end: 202103
  3. LISINOPRIL [Suspect]
     Active Substance: LISINOPRIL
     Indication: Blood pressure measurement
     Route: 048
     Dates: start: 202103, end: 20210325
  4. PRAZOSIN [Suspect]
     Active Substance: PRAZOSIN
     Indication: Blood pressure measurement
     Route: 048
     Dates: start: 20210331
  5. LEVOTHYROXINE [Concomitant]
     Active Substance: LEVOTHYROXINE
     Indication: Thyroid mass
     Route: 048
     Dates: start: 2001
  6. LEVOTHYROXINE [Concomitant]
     Active Substance: LEVOTHYROXINE
     Indication: Thyroid mass
     Route: 048
     Dates: start: 2001

REACTIONS (9)
  - Hypertension [Unknown]
  - Glomerular filtration rate decreased [Recovering/Resolving]
  - Dysuria [Recovered/Resolved]
  - Fatigue [Unknown]
  - Somnolence [Unknown]
  - Wrong technique in device usage process [Unknown]
  - Incorrect dose administered by device [Unknown]
  - Device leakage [Unknown]
  - Needle issue [Unknown]

NARRATIVE: CASE EVENT DATE: 20210301
